FAERS Safety Report 6600494-7 (Version None)
Quarter: 2010Q1

REPORT INFORMATION
  Report Type: 
  Country: None (occurrence: None)
  Receive Date: 20100223
  Receipt Date: 20100223
  Transmission Date: 20100710
  Serious: Yes (Hospitalization, Disabling)
  Sender: FDA-Public Use
  Company Number: None

PATIENT
  Age: 29 Year
  Sex: Female
  Weight: 61.2356 kg

DRUGS (1)
  1. MIRENA [Suspect]
     Indication: CONTRACEPTION
     Dates: start: 20090302, end: 20100226

REACTIONS (5)
  - DEVICE DISLOCATION [None]
  - DYSMENORRHOEA [None]
  - MENORRHAGIA [None]
  - POLYMENORRHOEA [None]
  - UTERINE PERFORATION [None]
